FAERS Safety Report 18740244 (Version 3)
Quarter: 2021Q1

REPORT INFORMATION
  Report Type: Spontaneous
  Country: IN (occurrence: IN)
  Receive Date: 20210114
  Receipt Date: 20210324
  Transmission Date: 20210419
  Serious: Yes (Other)
  Sender: FDA-Public Use
  Company Number: IN-PFIZER INC-2018536543

PATIENT
  Age: 62 Year
  Sex: Female

DRUGS (12)
  1. NEUKINE [Concomitant]
     Dosage: 300 UNK, D22/D23/D24
     Route: 058
  2. ZOLASTA [Concomitant]
     Dosage: UNK, MONTHLY
     Route: 042
  3. PALBACE [Suspect]
     Active Substance: PALBOCICLIB
     Dosage: 100 MG, CYCLIC (D1 ? D21 WEEK OFF)
  4. VITAMIN D NOS [Concomitant]
     Active Substance: VITAMIN D NOS
     Dosage: 6100 U
  5. PALBACE [Suspect]
     Active Substance: PALBOCICLIB
     Indication: BREAST CANCER METASTATIC
     Dosage: 125 MG, CYCLIC (ONCE DAILY, D1?D21, ONE WEEK OFF)
     Route: 048
     Dates: start: 20180213
  6. PALBACE [Suspect]
     Active Substance: PALBOCICLIB
     Dosage: 125 MG, 1X/DAY
     Route: 048
     Dates: start: 20200213
  7. CCM [Concomitant]
     Dosage: 1?1, 2X/DAY
  8. LETROZOLE. [Concomitant]
     Active Substance: LETROZOLE
     Dosage: 2.5, 1X/DAY (OD)
  9. FLEXON [Concomitant]
     Active Substance: ACETAMINOPHEN\IBUPROFEN
     Dosage: UNK
  10. ULTRACET [Concomitant]
     Active Substance: ACETAMINOPHEN\TRAMADOL HYDROCHLORIDE
     Dosage: UNK
  11. ZOLASTA [Concomitant]
     Dosage: 4 MG (IN 100 ML NS OVER 20 MINUTES)
  12. FEMARA [Concomitant]
     Active Substance: LETROZOLE
     Dosage: 2.5 MG, 1X/DAY

REACTIONS (16)
  - Lymphocyte count increased [Recovered/Resolved]
  - Eosinophil count increased [Unknown]
  - Discomfort [Unknown]
  - Mean cell haemoglobin concentration increased [Unknown]
  - Leukopenia [Unknown]
  - Renal disorder [Unknown]
  - Oropharyngeal pain [Not Recovered/Not Resolved]
  - Haemoglobin decreased [Unknown]
  - Asthenia [Not Recovered/Not Resolved]
  - Mean platelet volume decreased [Unknown]
  - Red blood cell count decreased [Not Recovered/Not Resolved]
  - Haematocrit decreased [Unknown]
  - Back pain [Unknown]
  - Red cell distribution width increased [Unknown]
  - Pyrexia [Unknown]
  - Neck pain [Unknown]

NARRATIVE: CASE EVENT DATE: 20181217
